FAERS Safety Report 6849077-4 (Version None)
Quarter: 2010Q3

REPORT INFORMATION
  Report Type: 
  Country: None (occurrence: None)
  Receive Date: 20100716
  Receipt Date: 20070925
  Transmission Date: 20110219
  Serious: No
  Sender: FDA-Public Use
  Company Number: US-PFIZER INC-2007082118

PATIENT
  Sex: Female
  Weight: 72.6 kg

DRUGS (10)
  1. CHANTIX [Suspect]
     Indication: SMOKING CESSATION THERAPY
     Dates: start: 20070921
  2. VALSARTAN [Concomitant]
  3. METOPROLOL [Concomitant]
  4. PLAVIX [Concomitant]
  5. LIPITOR [Concomitant]
  6. ZETIA [Concomitant]
  7. ACETYLSALICYLIC ACID [Concomitant]
  8. RANITIDINE [Concomitant]
  9. IBANDRONATE SODIUM [Concomitant]
  10. KLONOPIN [Concomitant]

REACTIONS (3)
  - FLATULENCE [None]
  - MALAISE [None]
  - NAUSEA [None]
